FAERS Safety Report 9253685 (Version 5)
Quarter: 2013Q2

REPORT INFORMATION
  Report Type: Spontaneous
  Country: US (occurrence: US)
  Receive Date: 20130425
  Receipt Date: 20130621
  Transmission Date: 20140414
  Serious: No
  Sender: FDA-Public Use
  Company Number: US-009507513-1304USA014506

PATIENT
  Sex: Female
  Weight: 72.56 kg

DRUGS (5)
  1. IMPLANON [Suspect]
     Indication: CONTRACEPTION
     Dosage: 1 IMPLANT
     Route: 059
     Dates: start: 20110322
  2. FLONASE [Concomitant]
  3. QVAR [Concomitant]
  4. ALBUTEROL [Concomitant]
     Route: 055
  5. RELAFEN [Concomitant]

REACTIONS (5)
  - Amenorrhoea [Unknown]
  - Pain in extremity [Unknown]
  - Weight increased [Unknown]
  - Medical device complication [Unknown]
  - Medical device complication [Unknown]
